FAERS Safety Report 4349995-5 (Version None)
Quarter: 2004Q2

REPORT INFORMATION
  Report Type: 
  Country: None (occurrence: None)
  Receive Date: 20040426
  Receipt Date: 20040408
  Transmission Date: 20050107
  Serious: Yes (Disabling)
  Sender: FDA-Public Use
  Company Number: DSA_24216_2004

PATIENT
  Sex: Male

DRUGS (6)
  1. ATIVAN [Suspect]
     Indication: ANXIETY
     Dosage: A FEW MONTHS
     Dates: start: 19801003
  2. ATIVAN [Suspect]
     Indication: STRESS SYMPTOMS
     Dosage: A FEW MONTHS
     Dates: start: 19801003
  3. ATIVAN [Suspect]
     Indication: ANXIETY
     Dates: end: 19870724
  4. ATIVAN [Suspect]
     Indication: STRESS SYMPTOMS
     Dates: end: 19870724
  5. SCHERIPROCT [Concomitant]
  6. PRISIUM [Concomitant]

REACTIONS (16)
  - AMNESIA [None]
  - ASTHENIA [None]
  - DEPRESSED LEVEL OF CONSCIOUSNESS [None]
  - DEPRESSION [None]
  - DISTURBANCE IN ATTENTION [None]
  - DRUG DEPENDENCE [None]
  - DRUG WITHDRAWAL SYNDROME [None]
  - GASTRIC DISORDER [None]
  - GENERAL PHYSICAL HEALTH DETERIORATION [None]
  - PALPITATIONS [None]
  - PERSONALITY CHANGE [None]
  - PSYCHIATRIC SYMPTOM [None]
  - SCOTOMA [None]
  - SLEEP DISORDER [None]
  - STRESS SYMPTOMS [None]
  - TINNITUS [None]
